FAERS Safety Report 14919322 (Version 4)
Quarter: 2018Q2

REPORT INFORMATION
  Report Type: Spontaneous
  Country: US (occurrence: US)
  Receive Date: 20180521
  Receipt Date: 20180607
  Transmission Date: 20180711
  Serious: Yes (Hospitalization)
  Sender: FDA-Public Use
  Company Number: US-UNITED THERAPEUTICS-UNT-2018-006940

PATIENT
  Age: 77 Year
  Sex: Female
  Weight: 87.98 kg

DRUGS (2)
  1. COUMADIN [Suspect]
     Active Substance: WARFARIN SODIUM
     Indication: PRODUCT USED FOR UNKNOWN INDICATION
     Route: 065
  2. REMODULIN [Suspect]
     Active Substance: TREPROSTINIL
     Indication: PULMONARY ARTERIAL HYPERTENSION
     Dosage: 0.085 ?G/KG, CONTINUING
     Route: 058
     Dates: start: 20160427

REACTIONS (5)
  - Toxicity to various agents [Unknown]
  - International normalised ratio abnormal [Unknown]
  - Herpes zoster [Unknown]
  - Hypersomnia [Unknown]
  - Decreased activity [Unknown]

NARRATIVE: CASE EVENT DATE: 201805
